FAERS Safety Report 8704745 (Version 2)
Quarter: 2015Q2

REPORT INFORMATION
  Report Type: Report from Study
  Country: US (occurrence: US)
  Receive Date: 20120803
  Receipt Date: 20150410
  Transmission Date: 20150821
  Serious: Yes (Other)
  Sender: FDA-Public Use
  Company Number: US-ROCHE-1094696

PATIENT
  Sex: Female

DRUGS (1)
  1. XOLAIR [Suspect]
     Active Substance: OMALIZUMAB
     Indication: ASTHMA
     Route: 058

REACTIONS (7)
  - Gastrooesophageal reflux disease [Unknown]
  - Diarrhoea [Unknown]
  - Gait disturbance [Unknown]
  - Constipation [Unknown]
  - Musculoskeletal chest pain [Recovered/Resolved]
  - Asthma [Unknown]
  - Fatigue [Unknown]
